FAERS Safety Report 5311122-5 (Version None)
Quarter: 2007Q2

REPORT INFORMATION
  Report Type: 
  Country: None (occurrence: None)
  Receive Date: 20070423
  Receipt Date: 20070320
  Transmission Date: 20071010
  Serious: Yes (Life-Threatening, Hospitalization)
  Sender: FDA-Public Use
  Company Number: GXKR2007GB02705

PATIENT
  Age: 49 Year
  Sex: Female

DRUGS (4)
  1. PARACETAMOL (NGX) (PARACETAMOL) UNKNOWN [Suspect]
     Indication: MEDICATION ERROR
     Dosage: 20 DF, 10 G, PARACETAMOL
  2. DEXTROPROPOXYPHENE+PARACETAMOL (NGX) (DEXTROPROPOXYPHENE, PARACETAMOL) [Suspect]
     Indication: MEDICATION ERROR
     Dosage: 60 DF, 20G PARACETAMOL, 2G DEXTROPRPOXYPHENE
  3. RISPERIDONE [Suspect]
     Indication: MEDICATION ERROR
  4. SERTRALINE [Suspect]
     Indication: MEDICATION ERROR

REACTIONS (6)
  - BRAIN OEDEMA [None]
  - CSF GLUCOSE DECREASED [None]
  - HEPATIC ENCEPHALOPATHY [None]
  - INTENTIONAL OVERDOSE [None]
  - OLIGURIA [None]
  - PULMONARY OEDEMA [None]
